FAERS Safety Report 9781532 (Version 1)
Quarter: 2013Q4

REPORT INFORMATION
  Report Type: Spontaneous
  Country: IT (occurrence: IT)
  Receive Date: 20131224
  Receipt Date: 20131224
  Transmission Date: 20140711
  Serious: Yes (Other)
  Sender: FDA-Public Use
  Company Number: IT-ELI_LILLY_AND_COMPANY-IT201312006956

PATIENT
  Age: 75 Year
  Sex: Male
  Weight: 77 kg

DRUGS (7)
  1. ALIMTA [Suspect]
     Indication: LUNG NEOPLASM
     Dosage: 469 MG, CYCLICAL
     Route: 042
     Dates: start: 20130722, end: 20130826
  2. ALLOPURINOL [Concomitant]
     Indication: HYPERURICAEMIA
     Dosage: 150 MG, UNK
     Route: 048
     Dates: start: 20121217, end: 20131215
  3. DEXAMETHASONE [Concomitant]
     Indication: PROPHYLAXIS
     Dosage: 8 MG, UNK
     Route: 042
     Dates: start: 20130722, end: 20130826
  4. ONDANSETRON [Concomitant]
     Indication: PROPHYLAXIS
     Dosage: 8 MG, UNK
     Route: 042
     Dates: start: 20130722, end: 20130826
  5. FILGRASTIM [Concomitant]
     Indication: PROPHYLAXIS
     Dosage: 1 DF, UNK
     Route: 058
     Dates: start: 20130805, end: 20130826
  6. DENOSUMAB [Concomitant]
     Indication: METASTASES TO BONE
     Dosage: 120 MG, UNK
     Route: 058
     Dates: start: 20130805, end: 20131007
  7. EPOETIN ALFA [Concomitant]
     Indication: ANAEMIA
     Dosage: 1 DF, UNK
     Route: 058
     Dates: start: 20130204, end: 20131215

REACTIONS (5)
  - Hepatotoxicity [Recovering/Resolving]
  - Atrial fibrillation [Recovering/Resolving]
  - Pancytopenia [Recovering/Resolving]
  - Asthenia [Recovering/Resolving]
  - Hypertransaminasaemia [Recovering/Resolving]
